FAERS Safety Report 5385862-6 (Version None)
Quarter: 2007Q3

REPORT INFORMATION
  Report Type: 
  Country: None (occurrence: None)
  Receive Date: 20070712
  Receipt Date: 20070705
  Transmission Date: 20080115
  Serious: Yes (Hospitalization)
  Sender: FDA-Public Use
  Company Number: US-ELI_LILLY_AND_COMPANY-US200707001435

PATIENT
  Sex: Female

DRUGS (2)
  1. HUMULIN 70/30 [Suspect]
     Dosage: 42 U, 2/D
  2. GLUCOTROL [Concomitant]
     Dosage: 10 MG, 2/D

REACTIONS (1)
  - FOOT OPERATION [None]
